FAERS Safety Report 5942070-5 (Version None)
Quarter: 2008Q4

REPORT INFORMATION
  Report Type: 
  Country: None (occurrence: None)
  Receive Date: 20081105
  Receipt Date: 20081103
  Transmission Date: 20090506
  Serious: Yes (Other)
  Sender: FDA-Public Use
  Company Number: A0754873A

PATIENT
  Age: 19 Year
  Sex: Male

DRUGS (1)
  1. ZYBAN [Suspect]
     Indication: DRUG USE FOR UNKNOWN INDICATION
     Dosage: 150MG TWICE PER DAY
     Route: 048
     Dates: start: 20080917

REACTIONS (4)
  - ABDOMINAL PAIN UPPER [None]
  - ARTERIOSPASM CORONARY [None]
  - HEART RATE INCREASED [None]
  - PALPITATIONS [None]
